FAERS Safety Report 10954895 (Version 3)
Quarter: 2015Q2

REPORT INFORMATION
  Report Type: Report from Study
  Country: KR (occurrence: KR)
  Receive Date: 20150325
  Receipt Date: 20150429
  Transmission Date: 20150821
  Serious: Yes (Life-Threatening, Hospitalization)
  Sender: FDA-Public Use
  Company Number: KR-MERCK-1503KOR010088

PATIENT
  Age: 63 Year
  Sex: Female
  Weight: 68.4 kg

DRUGS (10)
  1. VORINOSTAT [Suspect]
     Active Substance: VORINOSTAT
     Dosage: UNK
     Route: 048
     Dates: start: 20141229
  2. DEXAMETHASONE. [Suspect]
     Active Substance: DEXAMETHASONE
     Indication: LYMPHOMA
     Dosage: 20 MG, QD
     Route: 048
     Dates: start: 20150225, end: 20150301
  3. FLUDARABINE PHOSPHATE. [Suspect]
     Active Substance: FLUDARABINE PHOSPHATE
     Dosage: UNK
     Route: 042
     Dates: start: 20141229
  4. RANITIDINE [Concomitant]
     Active Substance: RANITIDINE\RANITIDINE HYDROCHLORIDE
     Indication: PROPHYLAXIS
     Dosage: 150 MG, QD
     Dates: start: 20150225, end: 20150306
  5. GLIMEPIRIDE. [Concomitant]
     Active Substance: GLIMEPIRIDE
     Indication: DIABETES MELLITUS
     Dosage: 4 MG, QD
     Dates: start: 2015, end: 20150320
  6. VORINOSTAT [Suspect]
     Active Substance: VORINOSTAT
     Indication: LYMPHOMA
     Dosage: 200 MG, QD
     Route: 048
     Dates: start: 20150225, end: 20150306
  7. MITOXANTRONE HYDROCHLORIDE. [Suspect]
     Active Substance: MITOXANTRONE HYDROCHLORIDE
     Indication: LYMPHOMA
     Dosage: 17.5 MG, ONCE
     Route: 042
     Dates: start: 20150225, end: 20150225
  8. FLUDARABINE PHOSPHATE. [Suspect]
     Active Substance: FLUDARABINE PHOSPHATE
     Dosage: UNK
     Route: 042
  9. FLUDARABINE PHOSPHATE. [Suspect]
     Active Substance: FLUDARABINE PHOSPHATE
     Indication: LYMPHOMA
     Dosage: 44 MG, ONCE
     Route: 042
     Dates: start: 20150225, end: 20150227
  10. MEGESTROL ACETATE. [Concomitant]
     Active Substance: MEGESTROL ACETATE
     Indication: PROPHYLAXIS
     Dosage: 1250 MG, QD
     Dates: start: 20150225, end: 20150306

REACTIONS (1)
  - Pneumonia [Recovered/Resolved with Sequelae]

NARRATIVE: CASE EVENT DATE: 20150319
